FAERS Safety Report 15822723 (Version 3)
Quarter: 2019Q2

REPORT INFORMATION
  Report Type: Report from Study
  Country: None (occurrence: US)
  Receive Date: 20190114
  Receipt Date: 20190619
  Transmission Date: 20190711
  Serious: Yes (Death, Hospitalization)
  Sender: FDA-Public Use
  Company Number: US-ABBVIE-18K-163-2551322-00

PATIENT
  Age: 62 Year
  Sex: Female

DRUGS (4)
  1. VENCLEXTA [Suspect]
     Active Substance: VENETOCLAX
     Indication: INVASIVE DUCTAL BREAST CARCINOMA
  2. VENCLEXTA [Suspect]
     Active Substance: VENETOCLAX
     Indication: MYELODYSPLASTIC SYNDROME
     Dosage: 1 TAB BY MOUTH DAILY FOR 14 DAYS THEN 14 DAYS OFF
     Route: 048
     Dates: start: 20180320
  3. VENCLEXTA [Suspect]
     Active Substance: VENETOCLAX
     Indication: BREAST CANCER FEMALE
     Route: 048
  4. VENCLEXTA [Suspect]
     Active Substance: VENETOCLAX
     Indication: INVASIVE DUCTAL BREAST CARCINOMA

REACTIONS (3)
  - Bone marrow failure [Fatal]
  - Myelodysplastic syndrome [Fatal]
  - Intentional product use issue [Not Recovered/Not Resolved]

NARRATIVE: CASE EVENT DATE: 201811
